FAERS Safety Report 4377456-6 (Version None)
Quarter: 2004Q2

REPORT INFORMATION
  Report Type: 
  Country: None (occurrence: None)
  Receive Date: 20040615
  Receipt Date: 20040519
  Transmission Date: 20050107
  Serious: Yes (Hospitalization)
  Sender: FDA-Public Use
  Company Number: PHBS2004JP06732

PATIENT
  Age: 58 Year
  Sex: Female

DRUGS (1)
  1. DICLOFENAC SODIUM [Suspect]
     Route: 048
     Dates: start: 19890101, end: 19890101

REACTIONS (5)
  - ASTHMA [None]
  - DIARRHOEA [None]
  - DYSPNOEA [None]
  - STRIDOR [None]
  - VOMITING [None]
